FAERS Safety Report 7621287-8 (Version None)
Quarter: 2011Q3

REPORT INFORMATION
  Report Type: 
  Country: None (occurrence: None)
  Receive Date: 20110719
  Receipt Date: 20110707
  Transmission Date: 20111222
  Serious: Yes (Other)
  Sender: FDA-Public Use
  Company Number: US-SANOFI-AVENTIS-2011SA038163

PATIENT
  Age: 78 Year
  Sex: Male

DRUGS (6)
  1. CHOLESTEROL [Concomitant]
  2. GLUCOPHAGE [Concomitant]
  3. REPAGLINIDE [Concomitant]
  4. LANTUS [Suspect]
     Indication: TYPE 2 DIABETES MELLITUS
     Dosage: DOSE:58 UNIT(S)
     Route: 058
     Dates: start: 20101001
  5. JANUVIA [Concomitant]
  6. SOLOSTAR [Suspect]
     Indication: TYPE 2 DIABETES MELLITUS
     Dates: start: 20101001

REACTIONS (3)
  - BLOOD GLUCOSE INCREASED [None]
  - PROSTATE CANCER [None]
  - CONDITION AGGRAVATED [None]
